FAERS Safety Report 19567233 (Version 2)
Quarter: 2021Q3

REPORT INFORMATION
  Report Type: Spontaneous
  Country: JP (occurrence: JP)
  Receive Date: 20210716
  Receipt Date: 20210811
  Transmission Date: 20211014
  Serious: Yes (Death, Hospitalization, Other)
  Sender: FDA-Public Use
  Company Number: NVSJ2021JP010828

PATIENT
  Age: 82 Year
  Sex: Male

DRUGS (13)
  1. WARFARIN [Concomitant]
     Active Substance: WARFARIN
     Indication: PRODUCT USED FOR UNKNOWN INDICATION
     Dosage: 3 MG, QD
     Route: 065
  2. TRAZENTA [Concomitant]
     Active Substance: LINAGLIPTIN
     Indication: PRODUCT USED FOR UNKNOWN INDICATION
     Dosage: 5 MG, QD
     Route: 065
  3. LUPRAC [Concomitant]
     Active Substance: TORSEMIDE
     Indication: PRODUCT USED FOR UNKNOWN INDICATION
     Dosage: 8 MG, QD
     Route: 065
  4. TRAMAL [Concomitant]
     Active Substance: TRAMADOL
     Indication: PRODUCT USED FOR UNKNOWN INDICATION
     Dosage: 50 MG, BID
     Route: 065
  5. GLIMICRON [Concomitant]
     Active Substance: GLICLAZIDE
     Indication: PRODUCT USED FOR UNKNOWN INDICATION
     Dosage: 20 MG, QD
     Route: 048
  6. MAINTATE [Concomitant]
     Active Substance: BISOPROLOL FUMARATE
     Indication: PRODUCT USED FOR UNKNOWN INDICATION
     Dosage: 0.625 MG, QD
     Route: 065
  7. PARIET [Concomitant]
     Active Substance: RABEPRAZOLE SODIUM
     Indication: PRODUCT USED FOR UNKNOWN INDICATION
     Dosage: 10 MG, QD
     Route: 065
  8. JADENU [Suspect]
     Active Substance: DEFERASIROX
     Indication: IRON OVERLOAD
     Dosage: 180 MG, QD
     Route: 048
  9. FEBURIC [Concomitant]
     Active Substance: FEBUXOSTAT
     Indication: PRODUCT USED FOR UNKNOWN INDICATION
     Dosage: 10 MG, QD
     Route: 065
  10. DIART [Concomitant]
     Indication: PRODUCT USED FOR UNKNOWN INDICATION
     Dosage: 60 MG, QD
     Route: 065
  11. WARFARIN [Concomitant]
     Active Substance: WARFARIN
     Dosage: 0.25 MG, QD
     Route: 065
  12. DIART [Concomitant]
     Dosage: 15 MG, QD
     Route: 065
  13. CONCENTRATED RED CELLS [Concomitant]
     Active Substance: HUMAN RED BLOOD CELL
     Indication: APLASIA PURE RED CELL
     Dosage: 4 DF, Q2W
     Route: 065

REACTIONS (7)
  - Cardiac failure chronic [Fatal]
  - Oedema [Fatal]
  - Respiratory arrest [Unknown]
  - Diabetes mellitus [Fatal]
  - Decreased activity [Fatal]
  - Listless [Fatal]
  - Renal impairment [Fatal]

NARRATIVE: CASE EVENT DATE: 202008
